FAERS Safety Report 4475418-1 (Version None)
Quarter: 2004Q4

REPORT INFORMATION
  Report Type: 
  Country: None (occurrence: None)
  Receive Date: 20041014
  Receipt Date: 20041014
  Transmission Date: 20050328
  Serious: Yes (Life-Threatening, Hospitalization)
  Sender: FDA-Public Use
  Company Number: None

PATIENT
  Age: 65 Year
  Sex: Female
  Weight: 70 kg

DRUGS (4)
  1. LOTENSIN HCT [Suspect]
     Indication: HYPERTENSION
     Dosage: 100/50 ONE QD
  2. XANAX [Concomitant]
  3. COZAAR [Concomitant]
  4. CALCIUM W.D [Concomitant]

REACTIONS (7)
  - ASTHENIA [None]
  - CHILLS [None]
  - DIZZINESS [None]
  - HYPOAESTHESIA [None]
  - LOOSE STOOLS [None]
  - NAUSEA [None]
  - VOMITING [None]
